FAERS Safety Report 17103309 (Version 1)
Quarter: 2019Q4

REPORT INFORMATION
  Report Type: Spontaneous
  Country: US (occurrence: US)
  Receive Date: 20191202
  Receipt Date: 20191202
  Transmission Date: 20200122
  Serious: Yes (Other)
  Sender: FDA-Public Use
  Company Number: None

PATIENT
  Age: 48 Year
  Sex: Female
  Weight: 48.6 kg

DRUGS (1)
  1. RANITIDINE 150 MG [Suspect]
     Active Substance: RANITIDINE
     Indication: GASTROOESOPHAGEAL REFLUX DISEASE

REACTIONS (8)
  - Throat irritation [None]
  - Impaired quality of life [None]
  - Oropharyngeal pain [None]
  - Productive cough [None]
  - Aphasia [None]
  - Dysphonia [None]
  - General symptom [None]
  - Drug ineffective [None]

NARRATIVE: CASE EVENT DATE: 20190527
